FAERS Safety Report 11374606 (Version 1)
Quarter: 2015Q3

REPORT INFORMATION
  Report Type: Spontaneous
  Country: US (occurrence: None)
  Receive Date: 20150812
  Receipt Date: 20150812
  Transmission Date: 20151125
  Serious: No
  Sender: FDA-Public Use
  Company Number: None

PATIENT
  Age: 44 Year
  Sex: Female
  Weight: 71.67 kg

DRUGS (3)
  1. NABUMATONE 750 MG GLE [Suspect]
     Active Substance: NABUMETONE
     Indication: PAIN IN EXTREMITY
     Dates: start: 20150806, end: 20150809
  2. NABUMATONE 750 MG GLE [Suspect]
     Active Substance: NABUMETONE
     Indication: NEUROPATHY PERIPHERAL
     Dates: start: 20150806, end: 20150809
  3. NABUMATONE 750 MG GLE [Suspect]
     Active Substance: NABUMETONE
     Indication: PLANTAR FASCIITIS
     Dates: start: 20150806, end: 20150809

REACTIONS (3)
  - Burning sensation [None]
  - Tinnitus [None]
  - Skin burning sensation [None]

NARRATIVE: CASE EVENT DATE: 20150809
